FAERS Safety Report 25117250 (Version 5)
Quarter: 2025Q2

REPORT INFORMATION
  Report Type: Report from Study
  Country: US (occurrence: US)
  Receive Date: 20250325
  Receipt Date: 20250622
  Transmission Date: 20250717
  Serious: Yes (Other)
  Sender: ABBVIE
  Company Number: US-ABBVIE-5984141

PATIENT
  Age: 61 Year
  Sex: Female
  Weight: 65.77 kg

DRUGS (9)
  1. RINVOQ [Suspect]
     Active Substance: UPADACITINIB
     Indication: Ankylosing spondylitis
     Dosage: FORM STRENGTH: 15 MILLIGRAM
     Route: 048
     Dates: start: 20231201
  2. RINVOQ [Suspect]
     Active Substance: UPADACITINIB
     Indication: Ankylosing spondylitis
     Route: 048
  3. RINVOQ [Suspect]
     Active Substance: UPADACITINIB
     Indication: Ankylosing spondylitis
     Route: 048
  4. RINVOQ [Suspect]
     Active Substance: UPADACITINIB
     Indication: Ankylosing spondylitis
     Route: 048
  5. VALIUM [Concomitant]
     Active Substance: DIAZEPAM
     Indication: Meniere^s disease
  6. AMITRIPTYLINE [Concomitant]
     Active Substance: AMITRIPTYLINE
     Indication: Meniere^s disease
  7. Serc [Concomitant]
     Indication: Meniere^s disease
  8. MESALAMINE [Concomitant]
     Active Substance: MESALAMINE
     Indication: Colitis ulcerative
  9. NEBIVOLOL [Concomitant]
     Active Substance: NEBIVOLOL
     Indication: Portal vein thrombosis

REACTIONS (10)
  - Meniere^s disease [Not Recovered/Not Resolved]
  - Influenza like illness [Recovered/Resolved]
  - Balance disorder [Not Recovered/Not Resolved]
  - Dizziness [Not Recovered/Not Resolved]
  - Sinusitis [Recovered/Resolved]
  - Hypoacusis [Not Recovered/Not Resolved]
  - Influenza A virus test positive [Recovered/Resolved]
  - Basal cell carcinoma [Recovered/Resolved]
  - Immune system disorder [Not Recovered/Not Resolved]
  - Drop attacks [Not Recovered/Not Resolved]

NARRATIVE: CASE EVENT DATE: 20240801
